FAERS Safety Report 9819173 (Version 2)
Quarter: 2015Q2

REPORT INFORMATION
  Report Type: Spontaneous
  Country: US (occurrence: US)
  Receive Date: 20140115
  Receipt Date: 20150604
  Transmission Date: 20150821
  Serious: Yes (Other)
  Sender: FDA-Public Use
  Company Number: US-PFIZER INC-2014010518

PATIENT
  Age: 47 Year
  Sex: Female

DRUGS (8)
  1. EFFEXOR XR [Suspect]
     Active Substance: VENLAFAXINE HYDROCHLORIDE
     Dosage: UNK
  2. LIDOCAINE. [Concomitant]
     Active Substance: LIDOCAINE
     Dosage: 5% PATCH 2 DF, 2X/DAY
     Route: 061
     Dates: start: 20140217
  3. BACLOFEN. [Concomitant]
     Active Substance: BACLOFEN
     Dosage: 10 MG, QHS
     Route: 048
     Dates: start: 20150518
  4. NUCYNTA [Concomitant]
     Active Substance: TAPENTADOL HYDROCHLORIDE
     Dosage: 100 MG, AS NEEDED (Q 6 HOURS)
     Route: 048
  5. LYRICA [Suspect]
     Active Substance: PREGABALIN
     Indication: RADICULITIS LUMBOSACRAL
     Dosage: 150 MG, 2X/DAY
     Route: 048
  6. VITAMIN D3 [Concomitant]
     Active Substance: CHOLECALCIFEROL
     Dosage: 50000 IU, WEEKLY
     Route: 048
  7. EFFEXOR [Suspect]
     Active Substance: VENLAFAXINE HYDROCHLORIDE
     Dosage: 50 MG, 2X/DAY
     Route: 048
  8. CRESTOR [Concomitant]
     Active Substance: ROSUVASTATIN CALCIUM
     Dosage: 10 MG, 1X/DAY (AT BEDTIME)
     Route: 048

REACTIONS (9)
  - Sciatica [Unknown]
  - Injury [Unknown]
  - Back pain [Unknown]
  - Back disorder [Unknown]
  - Procedural pain [Unknown]
  - Intervertebral disc displacement [Unknown]
  - Post laminectomy syndrome [Unknown]
  - Radiculitis lumbosacral [Unknown]
  - Pain [Unknown]

NARRATIVE: CASE EVENT DATE: 20131231
